FAERS Safety Report 12539755 (Version 1)
Quarter: 2016Q3

REPORT INFORMATION
  Report Type: Spontaneous
  Country: US (occurrence: None)
  Receive Date: 20160707
  Receipt Date: 20160707
  Transmission Date: 20161109
  Serious: Yes (Other)
  Sender: FDA-Public Use
  Company Number: None

PATIENT
  Age: 79 Year
  Sex: Female
  Weight: 80.74 kg

DRUGS (10)
  1. METOPROLOL. [Concomitant]
     Active Substance: METOPROLOL
  2. CITRACAL [Concomitant]
     Active Substance: CALCIUM CITRATE
  3. TELMISARTAN. [Concomitant]
     Active Substance: TELMISARTAN
  4. SURFATE [Concomitant]
  5. LEVOCTRIZINE [Concomitant]
  6. NIFEDIPINE. [Concomitant]
     Active Substance: NIFEDIPINE
  7. FUROSEMIDE 20 MG TABLETS MYLAN [Suspect]
     Active Substance: FUROSEMIDE
     Indication: HYPERTENSION
     Dosage: 20 MG 90 ONCE A DAY BY MOUTH
     Route: 048
     Dates: start: 20160303, end: 20160303
  8. LIPITOR [Concomitant]
     Active Substance: ATORVASTATIN CALCIUM
  9. CENTRUM [Concomitant]
     Active Substance: VITAMINS
  10. COLODINE [Concomitant]

REACTIONS (1)
  - Pollakiuria [None]

NARRATIVE: CASE EVENT DATE: 20160303
